FAERS Safety Report 9753107 (Version 1)
Quarter: 2013Q4

REPORT INFORMATION
  Report Type: Spontaneous
  Country: US (occurrence: US)
  Receive Date: 20131213
  Receipt Date: 20131213
  Transmission Date: 20140711
  Serious: No
  Sender: FDA-Public Use
  Company Number: US-GILEAD-2010-0026273

PATIENT
  Age: 77 Year
  Sex: Female

DRUGS (15)
  1. LETAIRIS [Suspect]
     Indication: PULMONARY ARTERIAL HYPERTENSION
     Route: 048
  2. KLOR-CON [Concomitant]
  3. MACRODANTIN [Concomitant]
  4. PRILOSEC [Concomitant]
  5. ALLOPURINOL [Concomitant]
  6. LASIX [Concomitant]
  7. METOPROLOL [Concomitant]
  8. REQUIP [Concomitant]
  9. GLYBURIDE [Concomitant]
  10. ASPIRIN [Concomitant]
  11. NORVASC [Concomitant]
  12. DILANTIN [Concomitant]
  13. PRAVASTATIN [Concomitant]
  14. PAXIL [Concomitant]
  15. LISINOPRIL [Concomitant]

REACTIONS (2)
  - Local swelling [Recovered/Resolved]
  - Swelling face [Recovered/Resolved]
